FAERS Safety Report 6494485-7 (Version None)
Quarter: 2009Q4

REPORT INFORMATION
  Report Type: 
  Country: None (occurrence: None)
  Receive Date: 20091214
  Receipt Date: 20090224
  Transmission Date: 20100525
  Serious: No
  Sender: FDA-Public Use
  Company Number: US-BRISTOL-MYERS SQUIBB COMPANY-14518419

PATIENT
  Age: 7 Year
  Sex: Male
  Weight: 32 kg

DRUGS (1)
  1. ABILIFY [Suspect]
     Indication: AUTISM
     Dates: start: 20080501

REACTIONS (1)
  - DRUG INEFFECTIVE [None]
